FAERS Safety Report 10182363 (Version 1)
Quarter: 2014Q2

REPORT INFORMATION
  Report Type: Spontaneous
  Country: US (occurrence: US)
  Receive Date: 20140520
  Receipt Date: 20140520
  Transmission Date: 20141212
  Serious: Yes (Other)
  Sender: FDA-Public Use
  Company Number: US-ROCHE-1404030

PATIENT
  Age: 45 Year
  Sex: Female

DRUGS (5)
  1. XELODA [Suspect]
     Indication: BREAST CANCER
     Dosage: 14 DAYS ON, 7 OFF
     Route: 048
     Dates: start: 20130927
  2. XELODA [Suspect]
     Indication: METASTASES TO NERVOUS SYSTEM
  3. XELODA [Suspect]
     Indication: BREAST CANCER FEMALE
  4. XELODA [Suspect]
     Indication: NEUTROPENIA
  5. TYKERB [Concomitant]
     Dosage: 5 TABS
     Route: 048
     Dates: start: 20130927

REACTIONS (5)
  - Convulsion [Not Recovered/Not Resolved]
  - Fatigue [Not Recovered/Not Resolved]
  - Mood swings [Not Recovered/Not Resolved]
  - Decreased appetite [Not Recovered/Not Resolved]
  - Depression [Not Recovered/Not Resolved]
